FAERS Safety Report 7291757-3 (Version None)
Quarter: 2011Q1

REPORT INFORMATION
  Report Type: 
  Country: None (occurrence: None)
  Receive Date: 20110214
  Receipt Date: 20110204
  Transmission Date: 20110831
  Serious: Yes (Other)
  Sender: FDA-Public Use
  Company Number: US-SANOFI-AVENTIS-2011SA007912

PATIENT
  Age: 13 Year
  Sex: Male

DRUGS (2)
  1. LANTUS [Suspect]
     Dosage: DOSE:21 UNIT(S)
     Route: 058
     Dates: start: 20040101
  2. NOVOLOG [Suspect]
     Dosage: VIA PUMP
     Route: 050

REACTIONS (1)
  - COELIAC DISEASE [None]
